FAERS Safety Report 15537403 (Version 1)
Quarter: 2018Q4

REPORT INFORMATION
  Report Type: Spontaneous
  Country: US (occurrence: US)
  Receive Date: 20181022
  Receipt Date: 20181022
  Transmission Date: 20190205
  Serious: Yes (Death)
  Sender: FDA-Public Use
  Company Number: None

PATIENT
  Sex: Female

DRUGS (1)
  1. ACTEMRA [Suspect]
     Active Substance: TOCILIZUMAB
     Dosage: ?          OTHER FREQUENCY:EVERY 7 DAYS;?
     Route: 058
     Dates: start: 20180131, end: 20180910

REACTIONS (1)
  - Death [None]
